FAERS Safety Report 12681690 (Version 1)
Quarter: 2016Q3

REPORT INFORMATION
  Report Type: Spontaneous
  Country: US (occurrence: US)
  Receive Date: 20160824
  Receipt Date: 20160824
  Transmission Date: 20161109
  Serious: Yes (Hospitalization, Other)
  Sender: FDA-Public Use
  Company Number: PHEH2016US020483

PATIENT
  Age: 8 Year
  Sex: Male
  Weight: 55.51 kg

DRUGS (4)
  1. JADENU [Suspect]
     Active Substance: DEFERASIROX
     Dosage: 720 MG, UNK
     Route: 048
  2. JADENU [Suspect]
     Active Substance: DEFERASIROX
     Indication: PRODUCT USED FOR UNKNOWN INDICATION
     Dosage: 450 MG, UNK
     Route: 048
  3. DESFERAL [Suspect]
     Active Substance: DEFEROXAMINE MESYLATE
     Indication: PRODUCT USED FOR UNKNOWN INDICATION
     Dosage: 700 MG X5D
     Route: 058
     Dates: start: 20160701
  4. JADENU [Suspect]
     Active Substance: DEFERASIROX
     Dosage: 720 MG, UNK
     Route: 048
     Dates: start: 201602, end: 201603

REACTIONS (4)
  - Haemoglobin decreased [Unknown]
  - Aspartate aminotransferase increased [Recovering/Resolving]
  - Alanine aminotransferase increased [Recovering/Resolving]
  - Serum ferritin increased [Unknown]

NARRATIVE: CASE EVENT DATE: 20160106
